FAERS Safety Report 7831547-3 (Version None)
Quarter: 2011Q4

REPORT INFORMATION
  Report Type: 
  Country: None (occurrence: None)
  Receive Date: 20111021
  Receipt Date: 20111019
  Transmission Date: 20120403
  Serious: Yes (Other)
  Sender: FDA-Public Use
  Company Number: CHPA2011US14463

PATIENT
  Age: 63 Year
  Sex: Female

DRUGS (5)
  1. VOLTAREN [Suspect]
     Indication: LIGAMENT RUPTURE
     Dosage: UNK, 2-3 TIMES A DAY
     Route: 061
     Dates: start: 20111005, end: 20111019
  2. IBUPROFEN [Concomitant]
     Dosage: UNK
     Dates: end: 20110928
  3. VICODIN [Concomitant]
     Indication: LIGAMENT RUPTURE
  4. PLAVIX [Concomitant]
     Dosage: UNK
     Dates: end: 20110928
  5. VITAMINS NOS [Concomitant]
     Dosage: UNK
     Dates: end: 20110928

REACTIONS (4)
  - WRONG TECHNIQUE IN DRUG USAGE PROCESS [None]
  - DRUG INEFFECTIVE FOR UNAPPROVED INDICATION [None]
  - NASAL OPERATION [None]
  - EYE OPERATION [None]
